FAERS Safety Report 8012178-1 (Version None)
Quarter: 2011Q4

REPORT INFORMATION
  Report Type: 
  Country: None (occurrence: None)
  Receive Date: 20111228
  Receipt Date: 20111226
  Transmission Date: 20120403
  Serious: Yes (Other)
  Sender: FDA-Public Use
  Company Number: FR-PFIZER INC-2011313617

PATIENT
  Age: 47 Year
  Sex: Female
  Weight: 60 kg

DRUGS (2)
  1. VARENICLINE TARTRATE [Suspect]
     Dosage: 1 DF, 2X/DAY
     Route: 048
     Dates: start: 20110219, end: 20110515
  2. LEVOTHYROXINE SODIUM [Concomitant]
     Route: 048

REACTIONS (2)
  - GLAUCOMA [None]
  - VISION BLURRED [None]
